FAERS Safety Report 24867947 (Version 1)
Quarter: 2025Q1

REPORT INFORMATION
  Report Type: Spontaneous
  Country: GB (occurrence: GB)
  Receive Date: 20250121
  Receipt Date: 20250121
  Transmission Date: 20250408
  Serious: Yes (Other)
  Sender: TORRENT PHARMA INC.
  Company Number: None

PATIENT
  Age: 51 Year
  Sex: Male

DRUGS (1)
  1. ROSUVASTATIN [Suspect]
     Active Substance: ROSUVASTATIN
     Indication: Total cholesterol/HDL ratio
     Route: 065
     Dates: start: 20240124, end: 20240829

REACTIONS (2)
  - Product prescribing error [Unknown]
  - Diabetes mellitus [Not Recovered/Not Resolved]
